FAERS Safety Report 5012963-4 (Version None)
Quarter: 2006Q2

REPORT INFORMATION
  Report Type: 
  Country: None (occurrence: None)
  Receive Date: 20060530
  Receipt Date: 20060517
  Transmission Date: 20061013
  Serious: Yes (Hospitalization)
  Sender: FDA-Public Use
  Company Number: FR-AVENTIS-200611896FR

PATIENT
  Age: 70 Year
  Sex: Male

DRUGS (11)
  1. LOVENOX [Suspect]
     Indication: ACUTE MYOCARDIAL INFARCTION
     Route: 058
     Dates: start: 20040212, end: 20040217
  2. CORVASAL INTRACORONAIRE 1 MG [Suspect]
     Route: 022
     Dates: start: 20040224, end: 20040224
  3. CORVASAL INTRACORONAIRE 1 MG [Suspect]
     Route: 022
     Dates: start: 20040213, end: 20040213
  4. PLAVIX [Suspect]
     Route: 048
     Dates: start: 20040212
  5. COVERSYL [Suspect]
     Route: 048
     Dates: start: 20040216
  6. VISIPAQUE [Suspect]
     Route: 042
     Dates: start: 20040213, end: 20040213
  7. VISIPAQUE [Suspect]
     Route: 042
     Dates: start: 20040224, end: 20040224
  8. TAHOR [Suspect]
     Route: 048
     Dates: start: 20040216
  9. TAHOR [Suspect]
     Route: 048
     Dates: start: 20040701, end: 20040701
  10. SELOKEN [Concomitant]
     Route: 048
     Dates: start: 20040212
  11. ASPIRIN [Concomitant]
     Route: 048
     Dates: start: 20040212

REACTIONS (3)
  - PSORIASIS [None]
  - RASH ERYTHEMATOUS [None]
  - RASH MACULAR [None]
